FAERS Safety Report 14800963 (Version 1)
Quarter: 2018Q2

REPORT INFORMATION
  Report Type: Spontaneous
  Country: DE (occurrence: DE)
  Receive Date: 20180424
  Receipt Date: 20180424
  Transmission Date: 20180711
  Serious: Yes (Hospitalization)
  Sender: FDA-Public Use
  Company Number: DE-SA-2018SA113002

PATIENT
  Age: 83 Year
  Sex: Male
  Weight: 83 kg

DRUGS (14)
  1. TIOTROPIUM BROMIDE [Concomitant]
     Active Substance: TIOTROPIUM BROMIDE
     Route: 048
  2. SITAGLIPTIN [Concomitant]
     Active Substance: SITAGLIPTIN
     Route: 048
  3. METOPROLOL. [Concomitant]
     Active Substance: METOPROLOL
     Route: 048
  4. SITAGLIPTIN [Concomitant]
     Active Substance: SITAGLIPTIN
     Dosage: REDUCED DOSE
     Route: 048
  5. BICANORM [Concomitant]
     Active Substance: SODIUM BICARBONATE
     Route: 048
  6. PANTOPRAZOL [Concomitant]
     Active Substance: PANTOPRAZOLE SODIUM
     Route: 048
  7. IRBESARTAN. [Concomitant]
     Active Substance: IRBESARTAN
     Route: 048
  8. AMLODIPINE [Concomitant]
     Active Substance: AMLODIPINE BESYLATE
     Route: 048
  9. TORASEMID [Concomitant]
     Active Substance: TORSEMIDE
     Route: 048
  10. MACROGOL/POTASSIUM CHLORIDE/SODIUM CHLORIDE/SODIUM HYDROGEN CARBONATE [Concomitant]
     Dosage: 13.125|0.35|0.18|0.05 G, ON NEED, BAG
     Route: 048
  11. SIMVASTATIN. [Concomitant]
     Active Substance: SIMVASTATIN
     Route: 048
  12. ENOXAPARIN SODIUM. [Suspect]
     Active Substance: ENOXAPARIN SODIUM
     Route: 058
  13. PREGABALIN. [Concomitant]
     Active Substance: PREGABALIN
     Route: 048
  14. RESONIUM A [Concomitant]
     Active Substance: SODIUM POLYSTYRENE SULFONATE
     Route: 048

REACTIONS (3)
  - Post procedural haemorrhage [Unknown]
  - Haematochezia [Unknown]
  - Dizziness [Unknown]
